FAERS Safety Report 12171693 (Version 1)
Quarter: 2016Q1

REPORT INFORMATION
  Report Type: Spontaneous
  Country: IN (occurrence: IN)
  Receive Date: 20160311
  Receipt Date: 20160311
  Transmission Date: 20160526
  Serious: Yes (Other)
  Sender: FDA-Public Use
  Company Number: IN-PFIZER INC-2016134386

PATIENT
  Age: 86 Year
  Sex: Female

DRUGS (3)
  1. CARDACE [Concomitant]
     Active Substance: RAMIPRIL
     Indication: HYPERTENSION
     Dosage: 1 DF (1 TABLET), DAILY
  2. SHELCAL [Concomitant]
     Dosage: 1 DF (1 TABLET), DAILY
  3. AROMASIN [Suspect]
     Active Substance: EXEMESTANE
     Indication: BREAST CANCER
     Dosage: 25 MG, 1X/DAY
     Route: 048
     Dates: start: 201602

REACTIONS (3)
  - Tremor [Unknown]
  - Arthritis [Unknown]
  - Condition aggravated [Unknown]
